FAERS Safety Report 11061854 (Version 1)
Quarter: 2015Q2

REPORT INFORMATION
  Report Type: Spontaneous
  Country: US (occurrence: US)
  Receive Date: 20150424
  Receipt Date: 20150424
  Transmission Date: 20150821
  Serious: No
  Sender: FDA-Public Use
  Company Number: US-BIOGENIDEC-2015BI052716

PATIENT
  Sex: Male

DRUGS (1)
  1. TECFIDERA [Suspect]
     Active Substance: DIMETHYL FUMARATE
     Indication: PRODUCT USED FOR UNKNOWN INDICATION

REACTIONS (6)
  - Abdominal pain upper [Unknown]
  - Hypersensitivity [Unknown]
  - Gait disturbance [Unknown]
  - Vision blurred [Unknown]
  - Feeling abnormal [Unknown]
  - Gastrointestinal disorder [Unknown]
